FAERS Safety Report 17154676 (Version 3)
Quarter: 2020Q1

REPORT INFORMATION
  Report Type: Spontaneous
  Country: JP (occurrence: JP)
  Receive Date: 20191214
  Receipt Date: 20200318
  Transmission Date: 20200409
  Serious: Yes (Hospitalization, Disabling, Other)
  Sender: FDA-Public Use
  Company Number: JP-ROCHE-2498493

PATIENT
  Age: 78 Year
  Sex: Male
  Weight: 61 kg

DRUGS (31)
  1. EMEND [Concomitant]
     Active Substance: APREPITANT
     Route: 048
     Dates: start: 20191017, end: 20191018
  2. AMLODIPINE [Concomitant]
     Active Substance: AMLODIPINE BESYLATE
     Route: 048
  3. ACETAMINOPHEN. [Concomitant]
     Active Substance: ACETAMINOPHEN
     Indication: PAIN
     Route: 048
     Dates: start: 20190926
  4. UNASYN S [Concomitant]
     Active Substance: AMPICILLIN SODIUM\SULBACTAM SODIUM
     Route: 041
     Dates: start: 20191008, end: 20191015
  5. SEISHOKU [Concomitant]
     Active Substance: SODIUM CHLORIDE
     Route: 065
     Dates: start: 20191016, end: 20191018
  6. GLUCOSE [Concomitant]
     Active Substance: DEXTROSE
     Route: 065
     Dates: start: 20191205, end: 20191207
  7. CARBOPLATIN. [Suspect]
     Active Substance: CARBOPLATIN
     Indication: SMALL CELL LUNG CANCER
     Dosage: DOSAGE IS UNCERTAIN.
     Route: 041
     Dates: start: 20191016, end: 20191016
  8. LIPIDIL [Concomitant]
     Active Substance: FENOFIBRATE
     Route: 048
     Dates: end: 20191104
  9. BELSOMRA [Concomitant]
     Active Substance: SUVOREXANT
     Route: 048
  10. MEDICON [DEXTROMETHORPHAN HYDROBROMIDE] [Concomitant]
     Active Substance: DEXTROMETHORPHAN HYDROBROMIDE
     Indication: COUGH
     Route: 048
     Dates: start: 20190925
  11. EMEND [Concomitant]
     Active Substance: APREPITANT
     Route: 048
     Dates: start: 20191016, end: 20191016
  12. BIO-THREE [Concomitant]
     Active Substance: HERBALS
     Route: 048
     Dates: start: 20191004
  13. NAFTOPIDIL OD [Concomitant]
     Active Substance: NAFTOPIDIL
     Route: 048
  14. LYRICA [Concomitant]
     Active Substance: PREGABALIN
     Route: 048
  15. ADENOSINE TRIPHOSPHATE DISODIUM [Concomitant]
     Active Substance: ADENOSINE TRIPHOSPHATE DISODIUM
     Route: 048
  16. FLORID [MICONAZOLE] [Concomitant]
     Route: 048
     Dates: start: 20191009, end: 20191015
  17. TERPERAN [Concomitant]
     Active Substance: METOCLOPRAMIDE HYDROCHLORIDE
     Indication: NAUSEA
     Route: 048
     Dates: start: 20191021
  18. ZOSYN [Concomitant]
     Active Substance: PIPERACILLIN SODIUM\TAZOBACTAM SODIUM
     Route: 041
     Dates: start: 20190930, end: 20191007
  19. DECADRON [Concomitant]
     Active Substance: DEXAMETHASONE
     Route: 065
     Dates: start: 20191016, end: 20191018
  20. METHYCOBAL [Concomitant]
     Active Substance: METHYLCOBALAMIN
     Route: 048
  21. ACETAMINOPHEN. [Concomitant]
     Active Substance: ACETAMINOPHEN
     Indication: PYREXIA
  22. TERPERAN [Concomitant]
     Active Substance: METOCLOPRAMIDE HYDROCHLORIDE
     Indication: HICCUPS
  23. VEPESID [Suspect]
     Active Substance: ETOPOSIDE
     Indication: SMALL CELL LUNG CANCER
     Dosage: DOSAGE IS UNCERTAIN.
     Route: 041
  24. KETOPROFEN. [Concomitant]
     Active Substance: KETOPROFEN
     Route: 061
  25. SEISHOKU [Concomitant]
     Active Substance: SODIUM CHLORIDE
     Route: 065
     Dates: start: 20191008, end: 20191016
  26. SEISHOKU [Concomitant]
     Active Substance: SODIUM CHLORIDE
     Route: 065
     Dates: start: 20191016, end: 20191016
  27. GRANISETRON [Concomitant]
     Active Substance: GRANISETRON
     Route: 041
     Dates: start: 20191016, end: 20191016
  28. TECENTRIQ [Suspect]
     Active Substance: ATEZOLIZUMAB
     Indication: SMALL CELL LUNG CANCER
     Dosage: DOSE INTERVAL UNCERTAINTY
     Route: 041
     Dates: start: 20191016, end: 20191016
  29. THYRADIN S [Concomitant]
     Active Substance: LEVOTHYROXINE SODIUM
     Route: 048
  30. ZOSYN [Concomitant]
     Active Substance: PIPERACILLIN SODIUM\TAZOBACTAM SODIUM
     Route: 041
     Dates: start: 20191028, end: 20191101
  31. FILGRASTIM [Concomitant]
     Active Substance: FILGRASTIM
     Route: 065
     Dates: start: 20191002, end: 20191102

REACTIONS (2)
  - Acute kidney injury [Recovering/Resolving]
  - Febrile neutropenia [Unknown]

NARRATIVE: CASE EVENT DATE: 20191030
